FAERS Safety Report 8114995 (Version 2)
Quarter: 2013Q1

REPORT INFORMATION
  Report Type: Spontaneous
  Country: JP (occurrence: JP)
  Receive Date: 20110831
  Receipt Date: 20130102
  Transmission Date: 20140127
  Serious: Yes (Hospitalization)
  Sender: FDA-Public Use
  Company Number: JP-ROCHE-789437

PATIENT
  Age: 8 Year
  Sex: Female

DRUGS (9)
  1. CELLCEPT [Suspect]
     Indication: PROPHYLAXIS AGAINST TRANSPLANT REJECTION
     Route: 048
  2. CELLCEPT [Suspect]
     Route: 048
  3. VALIXA [Suspect]
     Indication: INFECTION PROPHYLAXIS
     Route: 048
  4. VALIXA [Suspect]
     Route: 048
  5. VALIXA [Suspect]
     Route: 048
  6. VALIXA [Suspect]
     Route: 048
  7. VALIXA [Suspect]
     Route: 048
  8. SULFAMETHOXAZOLE/TRIMETHOPRIM [Suspect]
     Indication: PRODUCT USED FOR UNKNOWN INDICATION
     Route: 065
  9. ACICLOVIR [Suspect]
     Indication: PRODUCT USED FOR UNKNOWN INDICATION
     Route: 065

REACTIONS (3)
  - Cytomegalovirus infection [Recovered/Resolved]
  - White blood cell count decreased [Recovered/Resolved]
  - Hepatic enzyme increased [Recovered/Resolved]
